FAERS Safety Report 5660053-X (Version None)
Quarter: 2008Q1

REPORT INFORMATION
  Report Type: 
  Country: None (occurrence: None)
  Receive Date: 20080311
  Receipt Date: 20070831
  Transmission Date: 20080703
  Serious: No
  Sender: FDA-Public Use
  Company Number: US-BAYER-200712802BCC

PATIENT
  Age: 42 Year
  Sex: Male
  Weight: 91 kg

DRUGS (3)
  1. ALEVE [Suspect]
     Indication: DRUG USE FOR UNKNOWN INDICATION
     Dosage: TOTAL DAILY DOSE: 660 MG  UNIT DOSE: 220 MG
     Route: 048
     Dates: start: 20070830
  2. ALEVE [Suspect]
     Dosage: AS USED: 440/440 MG  UNIT DOSE: 220 MG
     Route: 048
     Dates: start: 20070831
  3. BEER [Suspect]
     Indication: DRUG USE FOR UNKNOWN INDICATION
     Dates: start: 20070830

REACTIONS (2)
  - DIARRHOEA [None]
  - NAUSEA [None]
